FAERS Safety Report 15711978 (Version 1)
Quarter: 2018Q4

REPORT INFORMATION
  Report Type: Spontaneous
  Country: CN (occurrence: CN)
  Receive Date: 20181212
  Receipt Date: 20181212
  Transmission Date: 20190205
  Serious: Yes (Life-Threatening)
  Sender: FDA-Public Use
  Company Number: CN-009507513-1812CHN004218

PATIENT
  Age: 79 Year
  Sex: Female

DRUGS (1)
  1. TIENAM [Suspect]
     Active Substance: CILASTATIN SODIUM\IMIPENEM
     Indication: INFECTION
     Dosage: 1 G, TID
     Route: 041
     Dates: start: 20180328, end: 20180330

REACTIONS (2)
  - Loss of consciousness [Recovering/Resolving]
  - Neurological symptom [Recovering/Resolving]

NARRATIVE: CASE EVENT DATE: 20180330
